FAERS Safety Report 15755825 (Version 2)
Quarter: 2019Q1

REPORT INFORMATION
  Report Type: Other
  Country: SE (occurrence: SE)
  Receive Date: 20181224
  Receipt Date: 20190205
  Transmission Date: 20190417
  Serious: Yes (Other)
  Sender: FDA-Public Use
  Company Number: SE-CELLTRION INC.-2018SE024683

PATIENT

DRUGS (2)
  1. ETANERCEPT [Suspect]
     Active Substance: ETANERCEPT
     Indication: RHEUMATOID ARTHRITIS
     Dosage: DOSAGE FORM: UNSPECIFIED
     Route: 065
     Dates: start: 201803
  2. INFLIXIMAB (UNKNOWN) [Suspect]
     Active Substance: INFLIXIMAB
     Indication: RHEUMATOID ARTHRITIS
     Dosage: UNK; DOSAGE FORM:LYOPHILIZED POWDER
     Route: 042
     Dates: start: 2017, end: 2017

REACTIONS (2)
  - Intraductal proliferative breast lesion [Unknown]
  - Drug ineffective [Unknown]

NARRATIVE: CASE EVENT DATE: 2017
